FAERS Safety Report 9798950 (Version 1)
Quarter: 2014Q1

REPORT INFORMATION
  Report Type: Spontaneous
  Country: DE (occurrence: DE)
  Receive Date: 20140106
  Receipt Date: 20140106
  Transmission Date: 20141002
  Serious: Yes (Death, Other)
  Sender: FDA-Public Use
  Company Number: DE-CELGENEUS-062-21880-13112429

PATIENT
  Age: 19 Year
  Sex: Male

DRUGS (2)
  1. REVLIMID [Suspect]
     Indication: HODGKIN^S DISEASE
     Dosage: 25 MILLIGRAM
     Route: 048
     Dates: start: 200804
  2. REVLIMID [Suspect]
     Dosage: 25 MILLIGRAM
     Route: 048
     Dates: start: 20080628

REACTIONS (5)
  - Death [Fatal]
  - Meningeal disorder [Unknown]
  - Disturbance in attention [Unknown]
  - Pyrexia [Unknown]
  - Headache [Unknown]
